FAERS Safety Report 23277773 (Version 1)
Quarter: 2023Q4

REPORT INFORMATION
  Report Type: Spontaneous
  Country: US (occurrence: None)
  Receive Date: 20231207
  Receipt Date: 20231207
  Transmission Date: 20240110
  Serious: Yes (Hospitalization)
  Sender: FDA-Public Use
  Company Number: None

PATIENT
  Age: 69 Year
  Sex: Male
  Weight: 110 kg

DRUGS (5)
  1. OXALIPLATIN [Suspect]
     Active Substance: OXALIPLATIN
     Indication: Oesophageal carcinoma
     Route: 041
     Dates: start: 20231031
  2. DEXAMETHASONE [Concomitant]
     Active Substance: DEXAMETHASONE
  3. PALONOSETRON [Concomitant]
     Active Substance: PALONOSETRON
  4. PEMBROLIZUMAB [Concomitant]
     Active Substance: PEMBROLIZUMAB
  5. IRON SUCROSE [Concomitant]
     Active Substance: IRON SUCROSE

REACTIONS (4)
  - Chills [None]
  - Haemoptysis [None]
  - Sepsis [None]
  - Hypersensitivity [None]

NARRATIVE: CASE EVENT DATE: 20231114
